FAERS Safety Report 8242948-6 (Version None)
Quarter: 2012Q1

REPORT INFORMATION
  Report Type: 
  Country: None (occurrence: None)
  Receive Date: 20120329
  Receipt Date: 20120329
  Transmission Date: 20120608
  Serious: Yes (Life-Threatening)
  Sender: FDA-Public Use
  Company Number: None

PATIENT
  Age: 28 Year
  Sex: Female
  Weight: 63.502 kg

DRUGS (2)
  1. VYVANSE [Concomitant]
  2. ADDERALL 5 [Suspect]

REACTIONS (4)
  - DRUG DEPENDENCE [None]
  - AGGRESSION [None]
  - VERBAL ABUSE [None]
  - PHYSICAL ABUSE [None]
